FAERS Safety Report 8326011-1 (Version None)
Quarter: 2012Q2

REPORT INFORMATION
  Report Type: 
  Country: None (occurrence: None)
  Receive Date: 20120501
  Receipt Date: 20100524
  Transmission Date: 20120825
  Serious: No
  Sender: FDA-Public Use
  Company Number: US-TEVA-2010002917

PATIENT
  Sex: Female
  Weight: 67.192 kg

DRUGS (7)
  1. LEXAPRO [Concomitant]
  2. VITAMIN B-12 [Concomitant]
     Dates: start: 20090101
  3. NUVIGIL [Suspect]
     Indication: FATIGUE
     Dosage: 500 MILLIGRAM;
     Route: 048
     Dates: start: 20100215, end: 20100515
  4. CENESTIN [Concomitant]
     Dates: start: 20050101
  5. PANTOPRAZOLE [Concomitant]
     Dates: start: 20070101
  6. LOTREL [Concomitant]
     Dates: start: 20050101
  7. CYTOMEL [Concomitant]
     Dates: start: 20100101

REACTIONS (4)
  - MENTAL DISORDER [None]
  - DRUG PRESCRIBING ERROR [None]
  - FATIGUE [None]
  - DRUG INEFFECTIVE FOR UNAPPROVED INDICATION [None]
